FAERS Safety Report 25775419 (Version 1)
Quarter: 2025Q3

REPORT INFORMATION
  Report Type: Spontaneous
  Country: US (occurrence: US)
  Receive Date: 20250909
  Receipt Date: 20250909
  Transmission Date: 20251021
  Serious: No
  Sender: NOVARTIS
  Company Number: US-002147023-NVSC2025US135833

PATIENT
  Sex: Female

DRUGS (2)
  1. LEQVIO [Suspect]
     Active Substance: INCLISIRAN SODIUM
     Indication: Product used for unknown indication
     Route: 065
     Dates: start: 202412
  2. LEQVIO [Suspect]
     Active Substance: INCLISIRAN SODIUM
     Route: 065
     Dates: start: 202503

REACTIONS (3)
  - Mobility decreased [Unknown]
  - Arthralgia [Unknown]
  - Myalgia [Unknown]
